FAERS Safety Report 6848791-4 (Version None)
Quarter: 2010Q3

REPORT INFORMATION
  Report Type: 
  Country: None (occurrence: None)
  Receive Date: 20100716
  Receipt Date: 20070908
  Transmission Date: 20110219
  Serious: No
  Sender: FDA-Public Use
  Company Number: US-PFIZER INC-2007075312

PATIENT
  Sex: Female
  Weight: 55.5 kg

DRUGS (4)
  1. CHANTIX [Suspect]
     Indication: SMOKING CESSATION THERAPY
     Dates: start: 20070823, end: 20070830
  2. OXYCODONE HCL [Concomitant]
  3. ZANAFLEX [Concomitant]
  4. TOPAMAX [Concomitant]

REACTIONS (1)
  - MUSCLE SPASMS [None]
